APPROVED DRUG PRODUCT: VINCASAR PFS
Active Ingredient: VINCRISTINE SULFATE
Strength: 1MG/ML
Dosage Form/Route: INJECTABLE;INJECTION
Application: A071426 | Product #001
Applicant: TEVA PARENTERAL MEDICINES INC
Approved: Jul 17, 1987 | RLD: No | RS: No | Type: DISCN